FAERS Safety Report 6155134-0 (Version None)
Quarter: 2009Q2

REPORT INFORMATION
  Report Type: 
  Country: None (occurrence: None)
  Receive Date: 20090415
  Receipt Date: 20090403
  Transmission Date: 20091009
  Serious: Yes (Hospitalization)
  Sender: FDA-Public Use
  Company Number: IE-RANBAXY-2009RR-23250

PATIENT
  Sex: Male

DRUGS (1)
  1. PINACLOR ORAL SUSPENSION 125MG/5ML [Suspect]
     Indication: LOWER RESPIRATORY TRACT INFECTION
     Dosage: UNK
     Route: 048

REACTIONS (2)
  - RASH [None]
  - SWELLING [None]
